FAERS Safety Report 9308118 (Version 7)
Quarter: 2017Q4

REPORT INFORMATION
  Report Type: Report from Study
  Country: JP (occurrence: JP)
  Receive Date: 20130524
  Receipt Date: 20171011
  Transmission Date: 20180321
  Serious: Yes (Hospitalization)
  Sender: FDA-Public Use
  Company Number: JP-PFIZER INC-2013154571

PATIENT
  Age: 63 Year
  Sex: Male
  Weight: 64.8 kg

DRUGS (9)
  1. AXITINIB [Suspect]
     Active Substance: AXITINIB
     Indication: RENAL CELL CARCINOMA
     Dosage: 5 MG, DAILY
     Dates: start: 20130417, end: 20130418
  2. AXITINIB [Suspect]
     Active Substance: AXITINIB
     Dosage: 8 MG, DAILY
     Dates: start: 20130509, end: 20130509
  3. AMLODIPINE BESILATE [Concomitant]
     Active Substance: AMLODIPINE BESYLATE
     Indication: HYPERTENSION
     Dosage: 5 MG, TWICE DAILY
     Route: 048
     Dates: start: 20130501, end: 20130514
  4. OLMESARTAN MEDOXOMIL. [Concomitant]
     Active Substance: OLMESARTAN MEDOXOMIL
     Indication: HYPERTENSION
     Dosage: 20 MG, ONCE DAILY
     Route: 048
     Dates: start: 20130425, end: 20130514
  5. HEPARINOID [Concomitant]
     Active Substance: CHONDROITIN SULFATE (BOVINE)
     Indication: PALMAR-PLANTAR ERYTHRODYSAESTHESIA SYNDROME
     Dosage: AS NEEDED
     Route: 003
     Dates: start: 20130501, end: 20130514
  6. FENOFIBRATE. [Concomitant]
     Active Substance: FENOFIBRATE
     Dosage: 80 MG, ONCE DAILY
     Route: 048
     Dates: end: 20130514
  7. AXITINIB [Suspect]
     Active Substance: AXITINIB
     Dosage: 3 MG, DAILY
     Dates: start: 20130510, end: 20130511
  8. MIYA-BM [Concomitant]
     Active Substance: CLOSTRIDIUM BUTYRICUM SPORES STRAIN M-55
     Indication: DIARRHOEA
     Dosage: 1 G, 3 TIMES DAILY
     Route: 048
     Dates: start: 20130501, end: 20130514
  9. FEBUXOSTAT. [Concomitant]
     Active Substance: FEBUXOSTAT
     Dosage: 10 MG, ONCE DAILY
     Route: 048
     Dates: start: 20130425, end: 20130514

REACTIONS (1)
  - Pneumonia bacterial [Recovered/Resolved]

NARRATIVE: CASE EVENT DATE: 20130514
